FAERS Safety Report 7247761-4 (Version None)
Quarter: 2011Q1

REPORT INFORMATION
  Report Type: 
  Country: None (occurrence: None)
  Receive Date: 20110127
  Receipt Date: 20110124
  Transmission Date: 20110831
  Serious: No
  Sender: FDA-Public Use
  Company Number: US-TEVA-264469USA

PATIENT
  Sex: Female
  Weight: 74.91 kg

DRUGS (2)
  1. AZILECT [Suspect]
     Indication: PARKINSON'S DISEASE
     Route: 048
     Dates: start: 20101218
  2. ERGOCALCIFEROL [Concomitant]

REACTIONS (2)
  - NASAL CONGESTION [None]
  - COUGH [None]
